FAERS Safety Report 10216856 (Version 1)
Quarter: 2014Q2

REPORT INFORMATION
  Report Type: Spontaneous
  Country: DE (occurrence: DE)
  Receive Date: 20140604
  Receipt Date: 20140604
  Transmission Date: 20141212
  Serious: Yes (Other)
  Sender: FDA-Public Use
  Company Number: DE-WATSON-2014-11526

PATIENT
  Age: 30 Year
  Sex: Female
  Weight: 87 kg

DRUGS (5)
  1. SERTRALINE (UNKNOWN) [Suspect]
     Indication: BIPOLAR DISORDER
     Dosage: 50 MG, DAILY
     Route: 048
     Dates: start: 20130304, end: 20130810
  2. SEROQUEL [Suspect]
     Indication: BIPOLAR DISORDER
     Dosage: 150 MG, DAILY
     Route: 048
     Dates: start: 20121213
  3. SEROQUEL [Suspect]
     Dosage: 50 MG, DAILY
     Route: 048
     Dates: end: 20130810
  4. FOLIC ACID [Concomitant]
     Indication: PROPHYLAXIS OF NEURAL TUBE DEFECT
     Dosage: 0.8 MG, DAILY
     Route: 048
     Dates: start: 20130115
  5. FOLIC ACID [Concomitant]
     Dosage: 0.4 MG, DAILY
     Route: 048

REACTIONS (6)
  - Foetal death [Recovered/Resolved]
  - Glucose tolerance impaired in pregnancy [Recovered/Resolved]
  - Placental insufficiency [Recovered/Resolved]
  - Exposure during pregnancy [Recovered/Resolved]
  - Small for dates baby [Recovered/Resolved]
  - Low birth weight baby [Recovered/Resolved]
